FAERS Safety Report 20656574 (Version 1)
Quarter: 2022Q1

REPORT INFORMATION
  Report Type: Report from Study
  Country: CA (occurrence: CA)
  Receive Date: 20220331
  Receipt Date: 20220331
  Transmission Date: 20220423
  Serious: Yes (Hospitalization)
  Sender: FDA-Public Use
  Company Number: CA-CELLTRION INC.-2022CA003711

PATIENT

DRUGS (4)
  1. INFLIXIMAB [Suspect]
     Active Substance: INFLIXIMAB
     Indication: Crohn^s disease
     Dosage: 1 DF
     Route: 042
  2. HUMIRA [Suspect]
     Active Substance: ADALIMUMAB
     Indication: Crohn^s disease
     Route: 058
  3. IMURAN [Suspect]
     Active Substance: AZATHIOPRINE
     Route: 065
  4. PREDNISONE [Suspect]
     Active Substance: PREDNISONE
     Route: 065

REACTIONS (7)
  - Abdominal pain [Unknown]
  - Arthralgia [Unknown]
  - Drug hypersensitivity [Unknown]
  - Frequent bowel movements [Unknown]
  - General physical health deterioration [Unknown]
  - Laboratory test abnormal [Unknown]
  - Therapeutic product effect decreased [Unknown]
